FAERS Safety Report 6943337-4 (Version None)
Quarter: 2010Q3

REPORT INFORMATION
  Report Type: 
  Country: None (occurrence: None)
  Receive Date: 20100826
  Receipt Date: 20100818
  Transmission Date: 20110219
  Serious: Yes (Hospitalization)
  Sender: FDA-Public Use
  Company Number: CA-ABBOTT-10P-028-0663665-00

PATIENT
  Sex: Male
  Weight: 72.64 kg

DRUGS (1)
  1. HUMIRA [Suspect]
     Indication: CROHN'S DISEASE
     Route: 058
     Dates: start: 20100107

REACTIONS (5)
  - HAEMATEMESIS [None]
  - INTESTINAL ULCER PERFORATION [None]
  - MALAISE [None]
  - THROMBOSIS [None]
  - VOMITING [None]
